FAERS Safety Report 18126848 (Version 1)
Quarter: 2020Q3

REPORT INFORMATION
  Report Type: Report from Study
  Country: US (occurrence: US)
  Receive Date: 20200810
  Receipt Date: 20200810
  Transmission Date: 20201103
  Serious: Yes (Other)
  Sender: FDA-Public Use
  Company Number: US-EMD SERONO-9179117

PATIENT
  Age: 45 Year
  Sex: Female

DRUGS (1)
  1. REBIF [Suspect]
     Active Substance: INTERFERON BETA-1A
     Indication: PRODUCT USED FOR UNKNOWN INDICATION
     Route: 058
     Dates: start: 20160602

REACTIONS (5)
  - Thermal burn [Unknown]
  - Scar [Unknown]
  - Neoplasm skin [Unknown]
  - Skin cancer [Unknown]
  - Injection site indentation [Unknown]

NARRATIVE: CASE EVENT DATE: 2019
